FAERS Safety Report 4999443-7 (Version None)
Quarter: 2006Q2

REPORT INFORMATION
  Report Type: 
  Country: None (occurrence: None)
  Receive Date: 20060509
  Receipt Date: 20060509
  Transmission Date: 20061013
  Serious: Yes (Hospitalization)
  Sender: FDA-Public Use
  Company Number: None

PATIENT
  Age: 58 Year
  Sex: Female
  Weight: 95.5 kg

DRUGS (7)
  1. HEPARIN [Suspect]
     Indication: THROMBOSIS PROPHYLAXIS
     Dosage: 5000 UNITS SC TID
     Route: 058
     Dates: start: 20051118, end: 20051202
  2. CAPTOPRIL [Concomitant]
  3. AMLODIPINE [Concomitant]
  4. SANDOSTATIN [Concomitant]
  5. HUMULIN 70/30 [Concomitant]
  6. METFORMIN [Concomitant]
  7. AVANDIA [Concomitant]

REACTIONS (5)
  - HEPARIN-INDUCED THROMBOCYTOPENIA [None]
  - INJECTION SITE RASH [None]
  - POSTOPERATIVE WOUND INFECTION [None]
  - SKIN NECROSIS [None]
  - THROMBOSIS [None]
